FAERS Safety Report 10680607 (Version 1)
Quarter: 2014Q4

REPORT INFORMATION
  Report Type: Spontaneous
  Country: US (occurrence: US)
  Receive Date: 20141229
  Receipt Date: 20141229
  Transmission Date: 20150529
  Serious: Yes (Hospitalization)
  Sender: FDA-Public Use
  Company Number: US-SA-2014SA092746

PATIENT
  Age: 56 Year
  Sex: Female
  Weight: 63.5 kg

DRUGS (10)
  1. PLAVIX [Suspect]
     Active Substance: CLOPIDOGREL BISULFATE
     Indication: STENT PLACEMENT
     Route: 048
     Dates: start: 20070626, end: 20100814
  2. CIPRO [Concomitant]
     Active Substance: CIPROFLOXACIN HYDROCHLORIDE
  3. COREG [Concomitant]
     Active Substance: CARVEDILOL
  4. PLAVIX [Suspect]
     Active Substance: CLOPIDOGREL BISULFATE
     Indication: ACUTE CORONARY SYNDROME
     Route: 048
     Dates: start: 20070626, end: 20100814
  5. DIOVAN [Concomitant]
     Active Substance: VALSARTAN
  6. PLAVIX [Suspect]
     Active Substance: CLOPIDOGREL BISULFATE
     Indication: ARTERIAL OCCLUSIVE DISEASE
     Route: 048
     Dates: start: 20070626, end: 20100814
  7. HUMALOG [Concomitant]
     Active Substance: INSULIN LISPRO
  8. FUROSEMIDE. [Concomitant]
     Active Substance: FUROSEMIDE
  9. LANTUS [Concomitant]
     Active Substance: INSULIN GLARGINE
  10. MOTRIN [Concomitant]
     Active Substance: IBUPROFEN

REACTIONS (1)
  - Myocardial infarction [Unknown]

NARRATIVE: CASE EVENT DATE: 201008
